FAERS Safety Report 7003228-X (Version None)
Quarter: 2010Q3

REPORT INFORMATION
  Report Type: 
  Country: None (occurrence: None)
  Receive Date: 20100916
  Receipt Date: 20100901
  Transmission Date: 20110219
  Serious: Yes (Other)
  Sender: FDA-Public Use
  Company Number: US-003620

PATIENT
  Sex: Male

DRUGS (2)
  1. DEGARELIX [Suspect]
     Indication: PRODUCT USED FOR UNKNOWN INDICATION
     Dates: start: 20090101
  2. OTHER CHEMOTHERAPEUTIC [Suspect]
     Indication: PRODUCT USED FOR UNKNOWN INDICATION
     Dosage: (INTRAVENOUS DRIP)
     Route: 041
     Dates: start: 20100101, end: 20100101

REACTIONS (7)
  - CHILLS [None]
  - DRUG INTERACTION [None]
  - FATIGUE [None]
  - HEART RATE DECREASED [None]
  - INSOMNIA [None]
  - MALAISE [None]
  - WHITE BLOOD CELL COUNT DECREASED [None]
